FAERS Safety Report 17241699 (Version 7)
Quarter: 2022Q2

REPORT INFORMATION
  Report Type: Report from Study
  Country: US (occurrence: None)
  Receive Date: 20200107
  Receipt Date: 20220427
  Transmission Date: 20220721
  Serious: Yes (Death, Life-Threatening, Hospitalization)
  Sender: FDA-Public Use
  Company Number: US-ROCHE-2514988

PATIENT
  Age: 72 Year
  Sex: Male
  Weight: 68.5 kg

DRUGS (7)
  1. BEVACIZUMAB [Suspect]
     Active Substance: BEVACIZUMAB
     Indication: Non-small cell lung cancer stage IV
     Dosage: ON 13/DEC/2019, HE RECEIVED THE LAST DOSE OF BEVACIZUMAB PRIOR TO COLONIC PERFORATION AND ILEUS ONSE
     Route: 042
     Dates: start: 20190916, end: 20191213
  2. ATEZOLIZUMAB [Suspect]
     Active Substance: ATEZOLIZUMAB
     Indication: Non-small cell lung cancer stage IV
     Dosage: ON 13/DEC/2019, HE RECEIVED THE LAST DOSE OF ATEZOLIZUMAB PRIOR TO COLONIC PERFORATION AND ILEUS ONS
     Route: 041
     Dates: start: 20190916
  3. CARBOPLATIN [Suspect]
     Active Substance: CARBOPLATIN
     Indication: Non-small cell lung cancer stage IV
     Dosage: ON 15/NOV/2019, HE RECEIVED THE LAST DOSE OF CARBOPLATIN PRIOR TO COLONIC PERFORATION AND ILEUS ONSE
     Route: 042
     Dates: start: 20190916
  4. PEMETREXED [Suspect]
     Active Substance: PEMETREXED
     Indication: Non-small cell lung cancer stage IV
     Dosage: ON 13/DEC/2019, HE RECEIVED THE LAST DOSE OF PEMETREXED PRIOR TO COLONIC PERFORATION AND ILEUS ONSET
     Route: 042
     Dates: start: 20190916
  5. POLYETHYLENE GLYCOL [Concomitant]
     Active Substance: POLYETHYLENE GLYCOL
     Indication: Constipation
     Dates: start: 20190811
  6. OXYCODONE [Concomitant]
     Active Substance: OXYCODONE
     Indication: Cancer pain
     Dosage: 5-10 MG Q4H PRN
     Dates: start: 20190802
  7. DOCUSATE\SENNOSIDES [Concomitant]
     Active Substance: DOCUSATE\SENNOSIDES
     Indication: Constipation
     Dosage: 100 MG BID PRN
     Dates: start: 20190810

REACTIONS (3)
  - Large intestine perforation [Recovered/Resolved with Sequelae]
  - Ileus [Recovered/Resolved with Sequelae]
  - Death [Fatal]

NARRATIVE: CASE EVENT DATE: 20191224
